FAERS Safety Report 16328547 (Version 2)
Quarter: 2019Q2

REPORT INFORMATION
  Report Type: Spontaneous
  Country: JP (occurrence: JP)
  Receive Date: 20190518
  Receipt Date: 20190527
  Transmission Date: 20190711
  Serious: Yes (Other)
  Sender: FDA-Public Use
  Company Number: PHHY2019JP109539

PATIENT
  Age: 71 Year
  Sex: Male
  Weight: 67 kg

DRUGS (3)
  1. 5-FU [Suspect]
     Active Substance: FLUOROURACIL
     Indication: GASTROOESOPHAGEAL CANCER
     Dosage: 640 MG/M2, DAYS 1-5, Q4W
     Route: 065
  2. NEDAPLATIN [Suspect]
     Active Substance: NEDAPLATIN
     Indication: GASTROOESOPHAGEAL CANCER
     Dosage: 72 MG/M2, DAY 1, Q4W
     Route: 065
  3. DOCETAXEL. [Suspect]
     Active Substance: DOCETAXEL
     Indication: GASTROOESOPHAGEAL CANCER
     Dosage: 28 MG/M2, ON DAYS 1 AND 15, EVERY 4 WEEKS
     Route: 065

REACTIONS (3)
  - Thrombocytopenia [Unknown]
  - Diarrhoea [Unknown]
  - Febrile neutropenia [Unknown]
